FAERS Safety Report 7758852-3 (Version None)
Quarter: 2011Q3

REPORT INFORMATION
  Report Type: 
  Country: None (occurrence: None)
  Receive Date: 20110916
  Receipt Date: 20110916
  Transmission Date: 20111222
  Serious: Yes (Hospitalization)
  Sender: FDA-Public Use
  Company Number: None

PATIENT
  Sex: Female
  Weight: 73.6 kg

DRUGS (2)
  1. TAXOL [Suspect]
     Dates: end: 20110610
  2. CYCLOPHOSPHAMIDE [Suspect]
     Dosage: 1080 MG
     Dates: end: 20110805

REACTIONS (5)
  - PALPITATIONS [None]
  - ALVEOLITIS ALLERGIC [None]
  - HAEMOGLOBIN DECREASED [None]
  - ANXIETY [None]
  - TACHYCARDIA [None]
